FAERS Safety Report 9946120 (Version 2)
Quarter: 2014Q2

REPORT INFORMATION
  Report Type: Spontaneous
  Country: NO (occurrence: NO)
  Receive Date: 20140303
  Receipt Date: 20140507
  Transmission Date: 20141212
  Serious: Yes (Other)
  Sender: FDA-Public Use
  Company Number: PHHY2014NO025213

PATIENT
  Age: 23 Year
  Sex: Female

DRUGS (1)
  1. RITALINE [Suspect]
     Dosage: 40 MG, BID
     Dates: start: 20120103

REACTIONS (4)
  - Alanine aminotransferase increased [Unknown]
  - Aspartate aminotransferase increased [Unknown]
  - Low density lipoprotein increased [Unknown]
  - Blood creatine phosphokinase increased [Unknown]
